FAERS Safety Report 12993807 (Version 1)
Quarter: 2016Q4

REPORT INFORMATION
  Report Type: Spontaneous
  Country: US (occurrence: US)
  Receive Date: 20161202
  Receipt Date: 20161202
  Transmission Date: 20170207
  Serious: Yes (Other)
  Sender: FDA-Public Use
  Company Number: US-JNJFOC-20161121565

PATIENT
  Sex: Male
  Weight: 63.5 kg

DRUGS (2)
  1. RISPERDAL [Suspect]
     Active Substance: RISPERIDONE
     Indication: POST-TRAUMATIC STRESS DISORDER
     Dosage: 3-4 TIMES DAILY
     Route: 048
     Dates: start: 2005, end: 2015
  2. RISPERDAL [Suspect]
     Active Substance: RISPERIDONE
     Indication: SCHIZOPHRENIA
     Dosage: 3-4 TIMES DAILY
     Route: 048
     Dates: start: 2005, end: 2015

REACTIONS (10)
  - Dysphagia [Not Recovered/Not Resolved]
  - Weight increased [Recovered/Resolved]
  - Fall [Not Recovered/Not Resolved]
  - Drug withdrawal convulsions [Unknown]
  - Muscle spasms [Not Recovered/Not Resolved]
  - Weight decreased [Unknown]
  - Pain [Not Recovered/Not Resolved]
  - Body height decreased [Unknown]
  - Drug ineffective for unapproved indication [Unknown]
  - Breast enlargement [Not Recovered/Not Resolved]
